FAERS Safety Report 12778250 (Version 1)
Quarter: 2016Q3

REPORT INFORMATION
  Report Type: Spontaneous
  Country: US (occurrence: US)
  Receive Date: 20160925
  Receipt Date: 20160925
  Transmission Date: 20161109
  Serious: No
  Sender: FDA-Public Use
  Company Number: US-SHIRE-US201612793

PATIENT
  Age: 49 Year
  Sex: Female
  Weight: 74.83 kg

DRUGS (1)
  1. ADDERALL XR [Suspect]
     Active Substance: AMPHETAMINE ASPARTATE\AMPHETAMINE SULFATE\DEXTROAMPHETAMINE SACCHARATE\DEXTROAMPHETAMINE SULFATE
     Indication: WEIGHT CONTROL
     Dosage: 30 MG, 1X/DAY:QD
     Route: 048
     Dates: start: 201503, end: 201508

REACTIONS (6)
  - Tobacco user [Not Recovered/Not Resolved]
  - Poor quality sleep [Recovered/Resolved]
  - Product use issue [Recovered/Resolved]
  - Aggression [Recovered/Resolved]
  - Bruxism [Recovered/Resolved]
  - Paranoia [Recovered/Resolved]

NARRATIVE: CASE EVENT DATE: 201503
